FAERS Safety Report 16806105 (Version 1)
Quarter: 2019Q3

REPORT INFORMATION
  Report Type: Spontaneous
  Country: US (occurrence: US)
  Receive Date: 20190913
  Receipt Date: 20190913
  Transmission Date: 20191005
  Serious: No
  Sender: FDA-Public Use
  Company Number: US-PERRIGO-19US007639

PATIENT
  Sex: Male

DRUGS (1)
  1. NEOMYCIN AND POLYMYXIN B SULFATES AND DEXAMETHASONE [Suspect]
     Active Substance: DEXAMETHASONE\NEOMYCIN SULFATE\POLYMYXIN B SULFATE
     Indication: EYE IRRITATION
     Dosage: THIN LINE, QHS
     Route: 047
     Dates: start: 20190621, end: 20190623

REACTIONS (3)
  - Off label use [Recovered/Resolved]
  - Condition aggravated [Recovered/Resolved]
  - Eye pruritus [Recovered/Resolved]

NARRATIVE: CASE EVENT DATE: 20190621
